FAERS Safety Report 10889647 (Version 1)
Quarter: 2015Q1

REPORT INFORMATION
  Report Type: Spontaneous
  Country: US (occurrence: US)
  Receive Date: 20150305
  Receipt Date: 20150305
  Transmission Date: 20150721
  Serious: Yes (Other)
  Sender: FDA-Public Use
  Company Number: US-UCBSA-2014014721

PATIENT
  Sex: Female

DRUGS (5)
  1. VIMPAT [Suspect]
     Active Substance: LACOSAMIDE
     Indication: PRODUCT USED FOR UNKNOWN INDICATION
     Dosage: UNK
  2. KEPPRA [Suspect]
     Active Substance: LEVETIRACETAM
     Indication: SEIZURE
     Dosage: UNK
     Dates: start: 2013, end: 201404
  3. TRILEPTAL [Concomitant]
     Active Substance: OXCARBAZEPINE
     Indication: PRODUCT USED FOR UNKNOWN INDICATION
     Dosage: UNK
  4. ONFI [Concomitant]
     Active Substance: CLOBAZAM
     Indication: SEIZURE
     Dosage: 20MG PER DAY
     Dates: start: 2014, end: 2014
  5. ONFI [Concomitant]
     Active Substance: CLOBAZAM
     Dosage: 40MG PER DAY
     Dates: start: 2014

REACTIONS (11)
  - Panic attack [Unknown]
  - Drug effect decreased [Unknown]
  - Generalised tonic-clonic seizure [Unknown]
  - Adverse drug reaction [Unknown]
  - Personality disorder [Unknown]
  - Seizure [Unknown]
  - Anxiety [Unknown]
  - Simple partial seizures [Unknown]
  - Activities of daily living impaired [Unknown]
  - Aura [Not Recovered/Not Resolved]
  - Drug dose omission [Unknown]

NARRATIVE: CASE EVENT DATE: 2014
